FAERS Safety Report 9783599 (Version 1)
Quarter: 2013Q4

REPORT INFORMATION
  Report Type: Spontaneous
  Country: FR (occurrence: FR)
  Receive Date: 20131226
  Receipt Date: 20131226
  Transmission Date: 20140711
  Serious: Yes (Hospitalization)
  Sender: FDA-Public Use
  Company Number: FR-B.I. PHARMACEUTICALS,INC./RIDGEFIELD-2013-BI-43081FF

PATIENT
  Age: 86 Year
  Sex: Female

DRUGS (3)
  1. PRADAXA [Suspect]
     Dosage: 220 MG
     Route: 048
     Dates: end: 20130912
  2. XARELTO [Suspect]
     Route: 048
     Dates: start: 20130912, end: 20130923
  3. PREVISCAN [Suspect]
     Dosage: 10 MG
     Route: 048
     Dates: start: 20130923, end: 20130926

REACTIONS (2)
  - International normalised ratio increased [Unknown]
  - Activated partial thromboplastin time prolonged [Unknown]
